FAERS Safety Report 15143783 (Version 1)
Quarter: 2018Q3

REPORT INFORMATION
  Report Type: Spontaneous
  Country: US (occurrence: US)
  Receive Date: 20180713
  Receipt Date: 20180713
  Transmission Date: 20181010
  Serious: No
  Sender: FDA-Public Use
  Company Number: US-AMGEN-USASP2010008420

PATIENT
  Sex: Female

DRUGS (3)
  1. EPOGEN [Suspect]
     Active Substance: ERYTHROPOIETIN
     Indication: DIALYSIS
     Dosage: 16000 IU, 3 TIMES/WK
  2. EPOGEN [Suspect]
     Active Substance: ERYTHROPOIETIN
     Dosage: 20000 IU, 2 TIMES/WK
     Dates: start: 20101027
  3. EPOGEN [Suspect]
     Active Substance: ERYTHROPOIETIN
     Dosage: 2000 IU, 2 TIMES/WK
     Dates: start: 20101027

REACTIONS (7)
  - Scratch [Not Recovered/Not Resolved]
  - Somnolence [Not Recovered/Not Resolved]
  - Laceration [Not Recovered/Not Resolved]
  - Diarrhoea [Not Recovered/Not Resolved]
  - Urticaria [Not Recovered/Not Resolved]
  - Pruritus [Not Recovered/Not Resolved]
  - Abdominal pain upper [Not Recovered/Not Resolved]

NARRATIVE: CASE EVENT DATE: 20101027
